FAERS Safety Report 13846602 (Version 6)
Quarter: 2018Q2

REPORT INFORMATION
  Report Type: Report from Study
  Country: GR (occurrence: GR)
  Receive Date: 20170808
  Receipt Date: 20180521
  Transmission Date: 20180711
  Serious: Yes (Life-Threatening, Hospitalization, Disabling, Other)
  Sender: FDA-Public Use
  Company Number: PHHY2017GR116283

PATIENT
  Age: 13 Year
  Sex: Male
  Weight: 60 kg

DRUGS (2)
  1. GLIVEC [Suspect]
     Active Substance: IMATINIB MESYLATE
     Indication: ACUTE LYMPHOCYTIC LEUKAEMIA
     Dosage: 300 MG, UNK
     Route: 048
     Dates: start: 20170526, end: 20170611
  2. GLIVEC [Suspect]
     Active Substance: IMATINIB MESYLATE
     Dosage: UNK
     Route: 048

REACTIONS (9)
  - Status epilepticus [Unknown]
  - Tonic clonic movements [Unknown]
  - Visual impairment [Unknown]
  - Vision blurred [Recovering/Resolving]
  - Retinal haemorrhage [Unknown]
  - Aspergillus infection [Not Recovered/Not Resolved]
  - Thrombocytopenia [Unknown]
  - Tachypnoea [Recovered/Resolved]
  - Headache [Unknown]

NARRATIVE: CASE EVENT DATE: 20170605
